FAERS Safety Report 8949153 (Version 1)
Quarter: 2012Q4

REPORT INFORMATION
  Report Type: 
  Country: CA (occurrence: CA)
  Receive Date: 20121206
  Receipt Date: 20121206
  Transmission Date: 20130627
  Serious: Yes (Other)
  Sender: FDA-Public Use
  Company Number: CA-BAYER-2012-086590

PATIENT
  Age: 27 Year
  Sex: Female
  Weight: 87 kg

DRUGS (3)
  1. MIRENA [Suspect]
     Dosage: 20 mcg/24hr, CONT
     Route: 015
  2. REMICADE [Suspect]
     Indication: COLITIS ULCERATIVE
     Dosage: 400 mg, 1 x every 8 weeks
     Route: 042
     Dates: start: 2010
  3. TECTA [Concomitant]

REACTIONS (4)
  - Gastroenteritis viral [Recovered/Resolved]
  - Haemorrhage [None]
  - Inflammation [Unknown]
  - Nasopharyngitis [Recovered/Resolved]
